FAERS Safety Report 9822495 (Version 2)
Quarter: 2014Q1

REPORT INFORMATION
  Report Type: Spontaneous
  Country: US (occurrence: US)
  Receive Date: 20140116
  Receipt Date: 20140116
  Transmission Date: 20141002
  Serious: No
  Sender: FDA-Public Use
  Company Number: US-ORAPHARMA-QUINORA-2012-042

PATIENT
  Sex: 0

DRUGS (2)
  1. ARESTIN [Suspect]
     Indication: PERIODONTAL DISEASE
     Dosage: 6 DF, ONE TIME DOSE
     Route: 050
     Dates: start: 20120125, end: 20120125
  2. PERIDEX [Concomitant]
     Indication: PRODUCT USED FOR UNKNOWN INDICATION

REACTIONS (4)
  - Mouth ulceration [Recovered/Resolved]
  - Oral mucosal blistering [Recovered/Resolved]
  - Oral discomfort [Recovered/Resolved]
  - Aphagia [Recovered/Resolved]
